FAERS Safety Report 5718227-5 (Version None)
Quarter: 2008Q2

REPORT INFORMATION
  Report Type: 
  Country: None (occurrence: None)
  Receive Date: 20080425
  Receipt Date: 20080416
  Transmission Date: 20081010
  Serious: Yes (Hospitalization)
  Sender: FDA-Public Use
  Company Number: PT-BAXTER-2008BH003678

PATIENT
  Sex: Female

DRUGS (10)
  1. EXTRANEAL [Suspect]
     Indication: PERITONEAL DIALYSIS
     Route: 033
     Dates: end: 20080410
  2. PHYSIONEAL 40 VIAFLEX [Suspect]
     Indication: PERITONEAL DIALYSIS
     Route: 033
     Dates: start: 20080324, end: 20080410
  3. PHYSIONEAL 40 VIAFLEX [Suspect]
     Route: 033
     Dates: end: 20080301
  4. TICLOPIDINE HCL [Concomitant]
     Indication: VENOUS THROMBOSIS
     Dates: start: 20071101
  5. CAPTOPRIL [Concomitant]
  6. LASIX [Concomitant]
  7. CALCIUM CARBONATE [Concomitant]
  8. MIMPARA [Concomitant]
  9. CALCITRIOL [Concomitant]
  10. DARBEPOETIN ALFA [Concomitant]

REACTIONS (6)
  - CANDIDIASIS [None]
  - CULTURE POSITIVE [None]
  - FUNGAL PERITONITIS [None]
  - MORGANELLA INFECTION [None]
  - PERITONEAL DIALYSIS COMPLICATION [None]
  - PERITONITIS BACTERIAL [None]
